FAERS Safety Report 24679003 (Version 5)
Quarter: 2025Q4

REPORT INFORMATION
  Report Type: Report from Study
  Country: EU (occurrence: EU)
  Receive Date: 20241129
  Receipt Date: 20251217
  Transmission Date: 20260117
  Serious: Yes (Hospitalization, Other)
  Sender: SANOFI AVENTIS
  Company Number: EU-SA-2017SA145893

PATIENT
  Age: 24 Year
  Sex: Male
  Weight: 47 kg

DRUGS (14)
  1. ALEMTUZUMAB [Suspect]
     Active Substance: ALEMTUZUMAB
     Indication: Relapsing multiple sclerosis
     Dosage: 12 MG, QD
     Route: 041
     Dates: start: 20170724, end: 20170728
  2. RANITIDINA [RANITIDINE HYDROCHLORIDE] [Concomitant]
     Indication: Prophylaxis
     Dosage: 50 MG
     Route: 042
     Dates: start: 20170724, end: 20170728
  3. CHLORPHENIRAMINE MALEATE [Concomitant]
     Active Substance: CHLORPHENIRAMINE MALEATE
     Indication: Prophylaxis
     Dosage: 10 MG
     Route: 042
     Dates: start: 20170724, end: 20170728
  4. SOLU-MEDROL [Concomitant]
     Active Substance: METHYLPREDNISOLONE SODIUM SUCCINATE
     Indication: Prophylaxis
     Dosage: 1000 MG
     Route: 042
     Dates: start: 20170724, end: 20170728
  5. TACHIPIRINA [Concomitant]
     Active Substance: ACETAMINOPHEN
     Indication: Prophylaxis
     Dosage: 500 MG
     Route: 048
     Dates: start: 20170724, end: 20170728
  6. ACYCLOVIR [Concomitant]
     Active Substance: ACYCLOVIR
     Indication: Prophylaxis
     Dosage: 400 MG
     Route: 048
     Dates: start: 20170724, end: 20170824
  7. ACYCLOVIR [Concomitant]
     Active Substance: ACYCLOVIR
     Dosage: 800 MG
     Route: 048
     Dates: start: 202103
  8. OCRELIZUMAB [Concomitant]
     Active Substance: OCRELIZUMAB
     Indication: Multiple sclerosis
     Dosage: 600 MG
     Route: 042
     Dates: start: 20240416
  9. DALFAMPRIDINE [Concomitant]
     Active Substance: DALFAMPRIDINE
     Indication: Multiple sclerosis
     Dosage: 5 MG
     Dates: start: 202204
  10. VITAMIN D NOS [Concomitant]
     Active Substance: CHOLECALCIFEROL\ERGOCALCIFEROL
     Indication: Prophylaxis
     Dosage: 25000 IU
     Route: 048
     Dates: start: 2023
  11. RITUXIMAB [Concomitant]
     Active Substance: RITUXIMAB
     Indication: Multiple sclerosis
     Dosage: 1000 MG
     Route: 042
     Dates: start: 20181219, end: 20181219
  12. RITUXIMAB [Concomitant]
     Active Substance: RITUXIMAB
     Dosage: 1000 MG
     Route: 042
     Dates: start: 20190102, end: 20190102
  13. RITUXIMAB [Concomitant]
     Active Substance: RITUXIMAB
     Dosage: 1000 MG
     Route: 042
     Dates: start: 20190921, end: 20190921
  14. RITUXIMAB [Concomitant]
     Active Substance: RITUXIMAB
     Dosage: 1000 MG
     Route: 042
     Dates: start: 20190923, end: 20190927

REACTIONS (22)
  - Hepatotoxicity [Recovered/Resolved]
  - Alanine aminotransferase increased [Recovered/Resolved]
  - Multiple sclerosis [Not Recovered/Not Resolved]
  - Rash pruritic [Recovered/Resolved]
  - Aspartate aminotransferase increased [Recovered/Resolved]
  - CD4 lymphocytes decreased [Recovered/Resolved]
  - CD3 lymphocytes decreased [Recovered/Resolved]
  - CD19 lymphocytes decreased [Recovered/Resolved]
  - Transaminases increased [Recovered/Resolved]
  - Autoimmune thyroiditis [Not Recovered/Not Resolved]
  - Rash [Recovered/Resolved]
  - Erythema [Recovered/Resolved]
  - Neutropenia [Recovered/Resolved]
  - Blood creatine phosphokinase increased [Not Recovered/Not Resolved]
  - Monocytosis [Recovered/Resolved]
  - Lymphopenia [Recovered/Resolved]
  - Leukopenia [Recovered/Resolved]
  - Thalassaemia minor [Not Recovered/Not Resolved]
  - Faecal calprotectin increased [Not Recovered/Not Resolved]
  - Hepatotoxicity [Recovered/Resolved]
  - Multiple sclerosis relapse [Not Recovered/Not Resolved]
  - Multiple sclerosis relapse [Not Recovered/Not Resolved]

NARRATIVE: CASE EVENT DATE: 20170727
